FAERS Safety Report 5736786-3 (Version None)
Quarter: 2008Q2

REPORT INFORMATION
  Report Type: 
  Country: None (occurrence: None)
  Receive Date: 20080513
  Receipt Date: 20080424
  Transmission Date: 20081010
  Serious: No
  Sender: FDA-Public Use
  Company Number: US-BAXTER-2008BH004414

PATIENT
  Age: 8 Year
  Sex: Male

DRUGS (2)
  1. HEPARIN SODIUM [Suspect]
     Indication: THROMBOSIS PROPHYLAXIS
     Dosage: DOSE UNIT:UNKNOWN
     Route: 042
     Dates: start: 20080229, end: 20080229
  2. SODIUM CHLORIDE 0.9% IN PLASTIC CONTAINER [Suspect]
     Indication: HAEMODIALYSIS
     Route: 042
     Dates: start: 20080229, end: 20080229

REACTIONS (2)
  - LOSS OF CONSCIOUSNESS [None]
  - VOMITING [None]
